FAERS Safety Report 9830473 (Version 3)
Quarter: 2014Q2

REPORT INFORMATION
  Report Type: Spontaneous
  Country: CA (occurrence: CA)
  Receive Date: 20140120
  Receipt Date: 20140508
  Transmission Date: 20141212
  Serious: Yes (Other)
  Sender: FDA-Public Use
  Company Number: CA-GLAXOSMITHKLINE-A1047640A

PATIENT
  Age: 63 Year
  Sex: Female
  Weight: 55.5 kg

DRUGS (15)
  1. ADVAIR DISKUS [Suspect]
     Indication: CHRONIC OBSTRUCTIVE PULMONARY DISEASE
     Dosage: 1PUFF TWICE PER DAY
     Route: 055
     Dates: start: 20010530
  2. VIMOVO [Suspect]
     Indication: INFLAMMATION
     Route: 065
  3. BCG [Suspect]
     Indication: BLADDER NEOPLASM
     Route: 065
     Dates: start: 20131211, end: 20131211
  4. BCG VACCINE [Suspect]
     Indication: BLADDER NEOPLASM
     Route: 065
     Dates: start: 20131218, end: 20131218
  5. VENTOLIN [Suspect]
     Indication: PRODUCT USED FOR UNKNOWN INDICATION
     Route: 065
  6. ONBREZ [Suspect]
     Indication: PRODUCT USED FOR UNKNOWN INDICATION
     Route: 065
     Dates: start: 20140424
  7. FLURAZEPAM [Concomitant]
     Indication: SLEEP DISORDER
     Dosage: 30MG AT NIGHT
  8. PANTOPRAZOLE [Concomitant]
     Indication: DYSPEPSIA
     Dosage: 40MG PER DAY
  9. RIVASA [Concomitant]
     Indication: CARDIOVASCULAR EVENT PROPHYLAXIS
     Dosage: 80MG PER DAY
  10. VITAMIN D + CALCIUM [Concomitant]
  11. SPIRIVA [Concomitant]
  12. CHOLESTYRAMINE [Concomitant]
     Dosage: 1PACK AS REQUIRED
  13. BCG [Concomitant]
     Route: 065
     Dates: start: 20131204, end: 20131204
  14. PNEUMONIA VACCINE [Concomitant]
     Route: 065
     Dates: start: 20131127, end: 20131127
  15. CHOLESTYRAMINE RESIN [Concomitant]

REACTIONS (21)
  - Dyspnoea [Recovering/Resolving]
  - Pain in extremity [Unknown]
  - Arthralgia [Unknown]
  - Musculoskeletal stiffness [Unknown]
  - Abdominal hernia [Unknown]
  - Fall [Unknown]
  - Back pain [Unknown]
  - Contusion [Recovering/Resolving]
  - Diarrhoea [Recovered/Resolved]
  - Bladder operation [Unknown]
  - Urinary bladder polyp [Unknown]
  - Bladder neoplasm [Unknown]
  - Blood urine present [Unknown]
  - Urinary tract infection [Unknown]
  - Pain [Unknown]
  - Burning sensation [Unknown]
  - Dyspnoea exertional [Unknown]
  - Cough [Unknown]
  - Pulmonary congestion [Unknown]
  - Productive cough [Unknown]
  - Headache [Unknown]
